FAERS Safety Report 25471884 (Version 1)
Quarter: 2025Q2

REPORT INFORMATION
  Report Type: Spontaneous
  Country: KR (occurrence: KR)
  Receive Date: 20250624
  Receipt Date: 20250624
  Transmission Date: 20250717
  Serious: Yes (Other)
  Sender: SANOFI AVENTIS
  Company Number: KR-ASTELLAS-2025-AER-033065

PATIENT
  Age: 89 Year
  Sex: Female

DRUGS (5)
  1. HARNAL [Suspect]
     Active Substance: TAMSULOSIN HYDROCHLORIDE
     Indication: Neurogenic bladder
     Dosage: 0.2 MG, TID (THREE TIMES A DAY)
     Route: 065
  2. HARNAL [Suspect]
     Active Substance: TAMSULOSIN HYDROCHLORIDE
     Dosage: 0.2 MG, BID (ONE TABLET TWICE DAILY IN MORNING AND)
     Route: 065
  3. MIRABEGRON [Suspect]
     Active Substance: MIRABEGRON
     Indication: Neurogenic bladder
     Dosage: 50 MG, QD (ONE TABLET ONCE DAILY)
     Route: 065
     Dates: start: 202506
  4. DIASTASE [Concomitant]
     Active Substance: DIASTASE
     Indication: Product used for unknown indication
     Route: 065
  5. PROPIVERINE [Concomitant]
     Active Substance: PROPIVERINE
     Indication: Product used for unknown indication
     Route: 065

REACTIONS (8)
  - Ascites [Unknown]
  - Hunger [Unknown]
  - Fatigue [Unknown]
  - Blood pressure decreased [Unknown]
  - Vision blurred [Unknown]
  - Product use issue [Unknown]
  - Product use in unapproved indication [Unknown]
  - Drug ineffective for unapproved indication [Unknown]

NARRATIVE: CASE EVENT DATE: 20250601
